FAERS Safety Report 4432523-3 (Version None)
Quarter: 2004Q3

REPORT INFORMATION
  Report Type: 
  Country: None (occurrence: None)
  Receive Date: 20040820
  Receipt Date: 20040816
  Transmission Date: 20050211
  Serious: Yes (Other)
  Sender: FDA-Public Use
  Company Number: 200413687BCC

PATIENT
  Age: 74 Year
  Sex: Male
  Weight: 225 kg

DRUGS (6)
  1. ASPIRIN [Suspect]
     Indication: MYOCARDIAL INFARCTION
     Dosage: 325 MG, QD, ORAL
     Route: 048
     Dates: start: 20030101
  2. ASPIRIN [Suspect]
     Indication: PROPHYLAXIS
     Dosage: 325 MG, QD, ORAL
     Route: 048
     Dates: start: 20030101
  3. BAYER EXTRA STRENGTH ASPIRIN [Suspect]
     Indication: ARTHRALGIA
     Dosage: 1000/32.5 MG, QD, ORAL
     Route: 048
     Dates: start: 20040626, end: 20040726
  4. PRINIVIL [Concomitant]
  5. LASIX [Concomitant]
  6. COREG [Concomitant]

REACTIONS (1)
  - DEAFNESS UNILATERAL [None]
